FAERS Safety Report 6308278-4 (Version None)
Quarter: 2009Q3

REPORT INFORMATION
  Report Type: 
  Country: None (occurrence: None)
  Receive Date: 20090807
  Receipt Date: 20090728
  Transmission Date: 20100115
  Serious: Yes (Hospitalization)
  Sender: FDA-Public Use
  Company Number: 220149K09USA

PATIENT
  Age: 12 Year
  Sex: Male
  Weight: 27 kg

DRUGS (2)
  1. SAIZEN [Suspect]
     Indication: GROWTH HORMONE DEFICIENCY
     Dosage: 1 MG, SUBCUTANEOUS
     Route: 058
     Dates: start: 20090612, end: 20090601
  2. SAIZEN [Suspect]
     Indication: GROWTH HORMONE DEFICIENCY
     Dosage: 1 MG, SUBCUTANEOUS
     Route: 058
     Dates: start: 20090101

REACTIONS (3)
  - ANAPHYLACTIC REACTION [None]
  - ANXIETY [None]
  - OCULAR HYPERAEMIA [None]
